FAERS Safety Report 8015719-3 (Version None)
Quarter: 2011Q4

REPORT INFORMATION
  Report Type: 
  Country: None (occurrence: None)
  Receive Date: 20111230
  Receipt Date: 20111221
  Transmission Date: 20120403
  Serious: Yes (Other)
  Sender: FDA-Public Use
  Company Number: PHHY2011MX111871

PATIENT
  Sex: Male

DRUGS (2)
  1. TRILEPTAL [Suspect]
     Indication: EPILEPSY
     Dosage: 0.5 DF, DAILY
     Route: 048
     Dates: start: 20091201
  2. TRILEPTAL [Suspect]
     Dosage: 600 MG,

REACTIONS (1)
  - CENTRAL NERVOUS SYSTEM LESION [None]
